FAERS Safety Report 4992088-4 (Version None)
Quarter: 2006Q2

REPORT INFORMATION
  Report Type: 
  Country: None (occurrence: None)
  Receive Date: 20060502
  Receipt Date: 20060426
  Transmission Date: 20061013
  Serious: Yes (Hospitalization, Other)
  Sender: FDA-Public Use
  Company Number: 2006-04-1918

PATIENT
  Age: 8 Year
  Sex: Female
  Weight: 28 kg

DRUGS (1)
  1. AERIUS (DESLORATADINE) SYRUP [Suspect]
     Indication: RHINITIS ALLERGIC
     Dosage: 1 SPOON QD ORAL
     Route: 048
     Dates: start: 20060316, end: 20060319

REACTIONS (9)
  - ABDOMINAL PAIN [None]
  - ASTHENIA [None]
  - CARDIAC MURMUR [None]
  - DIZZINESS [None]
  - HEADACHE [None]
  - LOSS OF CONSCIOUSNESS [None]
  - MALAISE [None]
  - TINNITUS [None]
  - VERTIGO [None]
